FAERS Safety Report 9339653 (Version 3)
Quarter: 2013Q4

REPORT INFORMATION
  Report Type: Report from Study
  Country: JP (occurrence: JP)
  Receive Date: 20130610
  Receipt Date: 20131224
  Transmission Date: 20140711
  Serious: Yes (Other)
  Sender: FDA-Public Use
  Company Number: PHHY2013JP058028

PATIENT
  Age: 49 Year
  Sex: Female
  Weight: 53 kg

DRUGS (34)
  1. LEPONEX / CLOZARIL [Suspect]
     Indication: SCHIZOPHRENIA, DISORGANISED TYPE
     Dosage: 12.5 MG, DAILY
     Route: 048
     Dates: start: 20120612, end: 20120612
  2. LEPONEX / CLOZARIL [Suspect]
     Dosage: 25 MG, DAILY
     Route: 048
     Dates: start: 20120613, end: 20120615
  3. LEPONEX / CLOZARIL [Suspect]
     Dosage: 50 MG, DAILY
     Route: 048
     Dates: start: 20120616, end: 20120618
  4. LEPONEX / CLOZARIL [Suspect]
     Dosage: 75 MG, DAILY
     Route: 048
     Dates: start: 20120619, end: 20120621
  5. LEPONEX / CLOZARIL [Suspect]
     Dosage: 100 MG, DAILY
     Route: 048
     Dates: start: 20120622, end: 20120624
  6. LEPONEX / CLOZARIL [Suspect]
     Dosage: 125 MG, DAILY
     Route: 048
     Dates: start: 20120625, end: 20120627
  7. LEPONEX / CLOZARIL [Suspect]
     Dosage: 150 MG, DAILY
     Route: 048
     Dates: start: 20120628, end: 20120630
  8. LEPONEX / CLOZARIL [Suspect]
     Dosage: 175 MG, DAILY
     Route: 048
     Dates: start: 20120701, end: 20120703
  9. LEPONEX / CLOZARIL [Suspect]
     Dosage: 200 MG, DAILY
     Route: 048
     Dates: start: 20120704, end: 20120706
  10. LEPONEX / CLOZARIL [Suspect]
     Dosage: 225 MG, DAILY
     Route: 048
     Dates: start: 20120707, end: 20120709
  11. LEPONEX / CLOZARIL [Suspect]
     Dosage: 250 MG, DAILY
     Route: 048
     Dates: start: 20120710, end: 20120712
  12. LEPONEX / CLOZARIL [Suspect]
     Dosage: 300 MG, DAILY
     Route: 048
     Dates: start: 20120713, end: 20120715
  13. LEPONEX / CLOZARIL [Suspect]
     Dosage: 350 MG, DAILY
     Route: 048
     Dates: start: 20120716, end: 20120719
  14. LEPONEX / CLOZARIL [Suspect]
     Dosage: 400 MG, DAILY
     Route: 048
     Dates: start: 20120720, end: 20120724
  15. LEPONEX / CLOZARIL [Suspect]
     Dosage: 425 MG, DAILY
     Route: 048
     Dates: start: 20120725, end: 20120809
  16. LEPONEX / CLOZARIL [Suspect]
     Dosage: 450 MG, DAILY
     Route: 048
     Dates: start: 20120810, end: 20120821
  17. LEPONEX / CLOZARIL [Suspect]
     Dosage: 475 MG, DAILY
     Route: 048
     Dates: start: 20120822, end: 20120828
  18. LEPONEX / CLOZARIL [Suspect]
     Dosage: 500 MG, DAILY
     Route: 048
     Dates: start: 20120829, end: 20120904
  19. LEPONEX / CLOZARIL [Suspect]
     Dosage: 525 MG, DAILY
     Route: 048
     Dates: start: 20120905, end: 20120911
  20. LEPONEX / CLOZARIL [Suspect]
     Dosage: 550 MG, DAILY
     Route: 048
     Dates: start: 20120912, end: 20120918
  21. LEPONEX / CLOZARIL [Suspect]
     Dosage: 575 MG, DAILY
     Route: 048
     Dates: start: 20120919, end: 20121016
  22. LEPONEX / CLOZARIL [Suspect]
     Dosage: 600 MG, DAILY
     Route: 048
     Dates: start: 20121017, end: 20121030
  23. LEPONEX / CLOZARIL [Suspect]
     Dosage: 550 MG, DAILY
     Route: 048
     Dates: start: 20121031
  24. RISPERIDONE [Concomitant]
     Dosage: 12 MG
     Route: 048
     Dates: start: 20120612
  25. RISPERIDONE [Concomitant]
     Dosage: 11 MG, UNK
     Route: 048
  26. RISPERIDONE [Concomitant]
     Dosage: 09 MG, UNK
     Route: 048
  27. RISPERIDONE [Concomitant]
     Dosage: 08 MG, UNK
     Route: 048
  28. RISPERIDONE [Concomitant]
     Dosage: 07 MG, UNK
     Route: 048
  29. RISPERIDONE [Concomitant]
     Dosage: 06 MG, UNK
     Route: 048
  30. RISPERIDONE [Concomitant]
     Dosage: 4.5 MG, UNK
     Route: 048
  31. RISPERIDONE [Concomitant]
     Dosage: 03 MG, UNK
     Route: 048
  32. RISPERIDONE [Concomitant]
     Dosage: 1.5 MG, UNK
     Route: 048
     Dates: end: 20120715
  33. LIMAS [Concomitant]
     Indication: SCHIZOPHRENIA, DISORGANISED TYPE
     Dosage: 600 MG
     Route: 048
  34. DEPAKENE [Concomitant]

REACTIONS (3)
  - Depressed level of consciousness [Recovering/Resolving]
  - Electroencephalogram abnormal [Recovering/Resolving]
  - Salivary hypersecretion [Recovering/Resolving]
